FAERS Safety Report 4295604-3 (Version None)
Quarter: 2004Q1

REPORT INFORMATION
  Report Type: 
  Country: None (occurrence: None)
  Receive Date: 20040216
  Receipt Date: 20030728
  Transmission Date: 20041129
  Serious: Yes (Other)
  Sender: FDA-Public Use
  Company Number: US-GLAXOSMITHKLINE-A0418469A

PATIENT
  Age: 49 Year
  Sex: Female

DRUGS (4)
  1. PAXIL [Suspect]
     Indication: ANXIETY
     Dosage: 40MG PER DAY
     Route: 048
     Dates: start: 20020901, end: 20030701
  2. REMERON [Concomitant]
     Dosage: 15MG PER DAY
     Route: 048
  3. ALLEGRA [Concomitant]
  4. NASACORT [Concomitant]

REACTIONS (6)
  - DIZZINESS [None]
  - DRUG WITHDRAWAL SYNDROME [None]
  - HYPERHIDROSIS [None]
  - TINNITUS [None]
  - TONGUE DISORDER [None]
  - VISUAL DISTURBANCE [None]
